FAERS Safety Report 24992151 (Version 2)
Quarter: 2025Q1

REPORT INFORMATION
  Report Type: Spontaneous
  Country: DE (occurrence: DE)
  Receive Date: 20250220
  Receipt Date: 20250327
  Transmission Date: 20250408
  Serious: Yes (Hospitalization, Other)
  Sender: MERCK SHARP & DOHME LLC
  Company Number: DE-009507513-2254496

PATIENT
  Age: 41 Year
  Sex: Male

DRUGS (1)
  1. PEMBROLIZUMAB [Suspect]
     Active Substance: PEMBROLIZUMAB

REACTIONS (6)
  - Pericardial effusion [Unknown]
  - Intensive care [Unknown]
  - Weight decreased [Unknown]
  - Multiple organ dysfunction syndrome [Unknown]
  - Dialysis [Unknown]
  - Immune-mediated adverse reaction [Unknown]
